FAERS Safety Report 6902264-9 (Version None)
Quarter: 2010Q3

REPORT INFORMATION
  Report Type: 
  Country: None (occurrence: None)
  Receive Date: 20100803
  Receipt Date: 20080509
  Transmission Date: 20110219
  Serious: No
  Sender: FDA-Public Use
  Company Number: US-PFIZER INC-2008041913

PATIENT
  Sex: Female
  Weight: 72.1 kg

DRUGS (9)
  1. LYRICA [Suspect]
     Indication: HYPOAESTHESIA
     Dates: start: 20071001, end: 20071201
  2. FENTANYL CITRATE [Interacting]
  3. DEPAKOTE [Concomitant]
  4. XANAX [Concomitant]
  5. BENADRYL [Concomitant]
  6. TOPROL-XL [Concomitant]
  7. FLEXERIL [Concomitant]
  8. SKELAXIN [Concomitant]
  9. HYDROCODONE BITARTRATE [Concomitant]

REACTIONS (6)
  - ACTIVITIES OF DAILY LIVING IMPAIRED [None]
  - CONFUSIONAL STATE [None]
  - DRUG INTERACTION [None]
  - MEMORY IMPAIRMENT [None]
  - MOBILITY DECREASED [None]
  - SOMNOLENCE [None]
